FAERS Safety Report 6900114-8 (Version None)
Quarter: 2010Q3

REPORT INFORMATION
  Report Type: 
  Country: None (occurrence: None)
  Receive Date: 20100803
  Receipt Date: 20100726
  Transmission Date: 20110219
  Serious: Yes (Other)
  Sender: FDA-Public Use
  Company Number: IT-ABBOTT-09P-083-0590179-00

PATIENT
  Age: 63 Year
  Sex: Female

DRUGS (4)
  1. ADALIMUMAB [Suspect]
     Indication: CROHN'S DISEASE
     Dosage: DOSE 1
  2. ADALIMUMAB [Suspect]
  3. AZATHIOPRINE [Suspect]
     Indication: IMMUNOSUPPRESSION
  4. STEROIDS [Suspect]
     Indication: PRODUCT USED FOR UNKNOWN INDICATION
     Dosage: 3 CYCLES PER YEAR FOR MANY YEARS

REACTIONS (2)
  - ACUTE LYMPHOCYTIC LEUKAEMIA [None]
  - LEUKAEMIA RECURRENT [None]
